FAERS Safety Report 5716242-9 (Version None)
Quarter: 2008Q2

REPORT INFORMATION
  Report Type: 
  Country: None (occurrence: None)
  Receive Date: 20080424
  Receipt Date: 20080415
  Transmission Date: 20081010
  Serious: Yes (Life-Threatening, Hospitalization, Other)
  Sender: FDA-Public Use
  Company Number: A0708123A

PATIENT
  Age: 60 Year
  Sex: Female
  Weight: 103.2 kg

DRUGS (6)
  1. VALTREX [Suspect]
     Indication: HERPES ZOSTER
     Dosage: 1G SINGLE DOSE
     Route: 048
     Dates: start: 20080102, end: 20080102
  2. LIPITOR [Concomitant]
     Indication: BLOOD CHOLESTEROL
     Dosage: 10MG PER DAY
     Route: 048
  3. ZESTRIL [Concomitant]
     Indication: HYPERTENSION
     Dosage: 10MG PER DAY
     Route: 048
  4. ASPIRIN [Concomitant]
     Dosage: 81MG PER DAY
     Route: 048
  5. FUROSEMIDE [Concomitant]
     Dosage: 20MG ALTERNATE DAYS
     Route: 048
  6. TRIAMCINOLONE [Concomitant]
     Indication: HERPES ZOSTER
     Dosage: 80MG SINGLE DOSE
     Route: 030

REACTIONS (4)
  - DRUG HYPERSENSITIVITY [None]
  - PARAESTHESIA ORAL [None]
  - REACTION TO AZO-DYES [None]
  - THROAT TIGHTNESS [None]
